FAERS Safety Report 16304814 (Version 1)
Quarter: 2019Q2

REPORT INFORMATION
  Report Type: Spontaneous
  Country: US (occurrence: US)
  Receive Date: 20190510
  Receipt Date: 20190510
  Transmission Date: 20190711
  Serious: Yes (Other)
  Sender: FDA-Public Use
  Company Number: None

PATIENT
  Age: 79 Year
  Sex: Female
  Weight: 48.15 kg

DRUGS (5)
  1. AMLODAPNE [Concomitant]
  2. LISINOPRIL. [Concomitant]
     Active Substance: LISINOPRIL
  3. LUTEIN [Concomitant]
     Active Substance: LUTEIN
  4. METOPROLOL. [Suspect]
     Active Substance: METOPROLOL
  5. ASPIRIN 81 MG [Concomitant]
     Active Substance: ASPIRIN

REACTIONS (5)
  - Fatigue [None]
  - Disturbance in attention [None]
  - Decreased appetite [None]
  - Affect lability [None]
  - Palpitations [None]

NARRATIVE: CASE EVENT DATE: 20190301
